FAERS Safety Report 18691772 (Version 1)
Quarter: 2021Q1

REPORT INFORMATION
  Report Type: Spontaneous
  Country: IN (occurrence: IN)
  Receive Date: 20210102
  Receipt Date: 20210102
  Transmission Date: 20210419
  Serious: No
  Sender: FDA-Public Use
  Company Number: IN-LUPIN LIMITED-2020-08941

PATIENT
  Age: 40 Year
  Sex: Male

DRUGS (4)
  1. DULOXETINE. [Suspect]
     Active Substance: DULOXETINE
     Indication: NEUROPATHY PERIPHERAL
     Dosage: 30 MILLIGRAM (AT BEDTIME HS FOR 3 DAYS)
     Route: 065
  2. 5?FLUOROURACIL [FLUOROURACIL SODIUM] [Concomitant]
     Active Substance: FLUOROURACIL SODIUM
     Indication: GASTROINTESTINAL ADENOCARCINOMA
     Dosage: UNK (3 CYCLES OF PALLIATIVE CHEMOTHERAPY)
     Route: 065
  3. CISPLATIN. [Concomitant]
     Active Substance: CISPLATIN
     Indication: GASTROINTESTINAL ADENOCARCINOMA
     Dosage: UNK (3 CYCLES OF PALLIATIVE CHEMOTHERAPY)
     Route: 065
  4. DULOXETINE. [Suspect]
     Active Substance: DULOXETINE
     Dosage: 60 MILLIGRAM, BID, 60 MILLIGRAM (DOSE INCREASED)
     Route: 065

REACTIONS (2)
  - Drug ineffective for unapproved indication [Unknown]
  - Off label use [Unknown]
